FAERS Safety Report 12169670 (Version 1)
Quarter: 2016Q1

REPORT INFORMATION
  Report Type: Other
  Country: US (occurrence: US)
  Receive Date: 20160310
  Receipt Date: 20160310
  Transmission Date: 20160526
  Serious: Yes (Other)
  Sender: FDA-Public Use
  Company Number: US-GUTHY-RENKER LLC-1048904

PATIENT
  Age: 21 Year
  Sex: Female

DRUGS (4)
  1. PROACTIV DEEP CLEANSING WASH [Suspect]
     Active Substance: SALICYLIC ACID
     Route: 061
     Dates: start: 20160203
  2. PROACTIV PLUS EMERGENCY BLEMISH RELIEF [Suspect]
     Active Substance: BENZOYL PEROXIDE
     Route: 061
     Dates: start: 20160203
  3. PROACTIV REPAIRING TREATMENT [Suspect]
     Active Substance: BENZOYL PEROXIDE
     Route: 061
     Dates: start: 20160203
  4. PROACTIV SOLUTION RENEWING CLEANSER [Suspect]
     Active Substance: BENZOYL PEROXIDE
     Indication: ACNE
     Route: 061
     Dates: start: 20160203

REACTIONS (3)
  - Pruritus [None]
  - Rash [Recovering/Resolving]
  - Skin exfoliation [None]

NARRATIVE: CASE EVENT DATE: 20160204
